FAERS Safety Report 4687091-8 (Version None)
Quarter: 2005Q2

REPORT INFORMATION
  Report Type: 
  Country: None (occurrence: None)
  Receive Date: 20050607
  Receipt Date: 20050520
  Transmission Date: 20051028
  Serious: Yes (Hospitalization, Other)
  Sender: FDA-Public Use
  Company Number: US_0502111719

PATIENT
  Age: 75 Year
  Sex: Female
  Weight: 77 kg

DRUGS (19)
  1. ZYPREXA [Suspect]
     Dosage: 7.5 MG
  2. DEPAKOTE [Concomitant]
  3. CLOZARIL [Concomitant]
  4. SEROQUEL [Concomitant]
  5. RISPERDAL [Concomitant]
  6. PAXIL [Concomitant]
  7. EFFEXOR [Concomitant]
  8. GLIPIZIDE /METFORMIN [Concomitant]
  9. AVANDIA [Concomitant]
  10. TOPAMAX [Concomitant]
  11. ASPIRIN [Concomitant]
  12. PANTOPRAZOLE [Concomitant]
  13. CLONAZEPAM [Concomitant]
  14. DONEPEZIL HCL [Concomitant]
  15. DELTASONE (PREDNISONE /00044701/) [Concomitant]
  16. FENOFIBRATE [Concomitant]
  17. GLUCOTROL [Concomitant]
  18. SIMVASTATIN [Concomitant]
  19. FENTANYL [Concomitant]

REACTIONS (18)
  - ANGINA PECTORIS [None]
  - ANXIETY [None]
  - BLOOD CHOLESTEROL ABNORMAL [None]
  - CHEST PAIN [None]
  - CONFUSIONAL STATE [None]
  - CORONARY ARTERY ATHEROSCLEROSIS [None]
  - DIABETES MELLITUS NON-INSULIN-DEPENDENT [None]
  - ELECTROCARDIOGRAM ST SEGMENT ELEVATION [None]
  - HYPERLIPIDAEMIA [None]
  - HYPERTENSION [None]
  - HYPOTENSION [None]
  - LIPASE INCREASED [None]
  - LOSS OF CONSCIOUSNESS [None]
  - MYOCARDIAL INFARCTION [None]
  - RENAL FAILURE ACUTE [None]
  - SUBARACHNOID HAEMORRHAGE [None]
  - TREMOR [None]
  - VASCULAR DEMENTIA [None]
